FAERS Safety Report 4284087-5 (Version None)
Quarter: 2004Q1

REPORT INFORMATION
  Report Type: 
  Country: None (occurrence: None)
  Receive Date: 20040130
  Receipt Date: 20040127
  Transmission Date: 20041129
  Serious: Yes (Death, Hospitalization)
  Sender: FDA-Public Use
  Company Number: 2003UW16302

PATIENT
  Sex: Female

DRUGS (1)
  1. IRESSA [Suspect]

REACTIONS (5)
  - CHRONIC OBSTRUCTIVE AIRWAYS DISEASE [None]
  - MULTI-ORGAN FAILURE [None]
  - PULMONARY EMBOLISM [None]
  - PULMONARY VASCULITIS [None]
  - RESPIRATORY FAILURE [None]
